FAERS Safety Report 5136899-3 (Version None)
Quarter: 2006Q4

REPORT INFORMATION
  Report Type: 
  Country: None (occurrence: None)
  Receive Date: 20061023
  Receipt Date: 20061011
  Transmission Date: 20070319
  Serious: Yes (Other)
  Sender: FDA-Public Use
  Company Number: 2006125791

PATIENT
  Sex: Female

DRUGS (3)
  1. DIABINESE [Suspect]
     Indication: DIABETES MELLITUS
     Dosage: 250 MG (250 MG, 1 IN 1 D), ORAL
     Route: 048
     Dates: start: 19990101
  2. SERTRALINE [Concomitant]
  3. ALUMINUM HYDROXIDE TAB [Concomitant]

REACTIONS (3)
  - BENIGN UTERINE NEOPLASM [None]
  - GASTRIC ULCER [None]
  - VAGINAL HAEMORRHAGE [None]
